FAERS Safety Report 18308737 (Version 1)
Quarter: 2020Q3

REPORT INFORMATION
  Report Type: Spontaneous
  Country: FR (occurrence: FR)
  Receive Date: 20200924
  Receipt Date: 20200924
  Transmission Date: 20201103
  Serious: Yes (Hospitalization, Other)
  Sender: FDA-Public Use
  Company Number: NVSC2020FR259510

PATIENT
  Age: 29 Year
  Sex: Male

DRUGS (3)
  1. PREDNISONE. [Suspect]
     Active Substance: PREDNISONE
     Dosage: 40 MG, QD (TAPERED DOSE)
     Route: 065
  2. PREDNISONE. [Suspect]
     Active Substance: PREDNISONE
     Dosage: 2 MG/KG, QD
     Route: 065
  3. PREDNISONE. [Suspect]
     Active Substance: PREDNISONE
     Indication: STILL^S DISEASE
     Dosage: 1 MG/KG, QD (80 MG/QD)
     Route: 065

REACTIONS (4)
  - Haemophagocytic lymphohistiocytosis [Unknown]
  - Drug ineffective [Unknown]
  - Hepatitis [Unknown]
  - Still^s disease [Recovered/Resolved]
